FAERS Safety Report 24668790 (Version 1)
Quarter: 2024Q4

REPORT INFORMATION
  Report Type: Spontaneous
  Country: JP (occurrence: JP)
  Receive Date: 20241127
  Receipt Date: 20241127
  Transmission Date: 20250115
  Serious: Yes (Other)
  Sender: RANBAXY
  Company Number: JP-SUN PHARMACEUTICAL INDUSTRIES LTD-2024RR-481323

PATIENT
  Age: 25 Year
  Sex: Female

DRUGS (2)
  1. QUETIAPINE [Suspect]
     Active Substance: QUETIAPINE
     Indication: Depression
     Dosage: 300 MILLIGRAM, DAILY
     Route: 065
  2. LURASIDONE [Suspect]
     Active Substance: LURASIDONE
     Indication: Depression
     Dosage: 60 MILLIGRAM, DAILY
     Route: 065

REACTIONS (3)
  - Drug ineffective [Unknown]
  - Dyskinesia [Unknown]
  - Dystonia [Unknown]
